FAERS Safety Report 6027921-0 (Version None)
Quarter: 2009Q1

REPORT INFORMATION
  Report Type: 
  Country: None (occurrence: None)
  Receive Date: 20090105
  Receipt Date: 20081229
  Transmission Date: 20090719
  Serious: Yes (Hospitalization)
  Sender: FDA-Public Use
  Company Number: PHEH2008US11431

PATIENT
  Sex: Female

DRUGS (2)
  1. EXFORGE [Suspect]
  2. TEKTURNA [Suspect]

REACTIONS (4)
  - ANAEMIA [None]
  - DIARRHOEA [None]
  - FLUID RETENTION [None]
  - MALAISE [None]
